FAERS Safety Report 16978780 (Version 1)
Quarter: 2019Q4

REPORT INFORMATION
  Report Type: Spontaneous
  Country: US (occurrence: US)
  Receive Date: 20191031
  Receipt Date: 20191031
  Transmission Date: 20200122
  Serious: No
  Sender: FDA-Public Use
  Company Number: US-SUNOVION-2019SUN004457

PATIENT
  Age: 56 Year
  Sex: Male

DRUGS (1)
  1. LONHALA MAGNAIR [Suspect]
     Active Substance: GLYCOPYRROLATE
     Indication: CHRONIC OBSTRUCTIVE PULMONARY DISEASE
     Dosage: 25 MCG/1 ML, BID (25 MCG/1 ML/ 60/ 30)
     Route: 055

REACTIONS (2)
  - Drug ineffective [Unknown]
  - Upper respiratory tract infection [Recovered/Resolved]
